FAERS Safety Report 23097624 (Version 3)
Quarter: 2023Q4

REPORT INFORMATION
  Report Type: Spontaneous
  Country: US (occurrence: US)
  Receive Date: 20231023
  Receipt Date: 20231106
  Transmission Date: 20240109
  Serious: Yes (Hospitalization, Other)
  Sender: FDA-Public Use
  Company Number: US-BAYER-2023A144939

PATIENT
  Age: 40 Year
  Sex: Female

DRUGS (1)
  1. MIRENA [Suspect]
     Active Substance: LEVONORGESTREL
     Dosage: 20?G/DAY
     Route: 015
     Dates: start: 20220901, end: 20230921

REACTIONS (4)
  - Device dislocation [Recovered/Resolved]
  - Device breakage [None]
  - Coital bleeding [None]
  - Procedural pain [None]

NARRATIVE: CASE EVENT DATE: 20230727
